FAERS Safety Report 25159050 (Version 2)
Quarter: 2025Q2

REPORT INFORMATION
  Report Type: Spontaneous
  Country: CA (occurrence: CA)
  Receive Date: 20250404
  Receipt Date: 20250405
  Transmission Date: 20250716
  Serious: Yes (Other)
  Sender: ACCORD
  Company Number: None

PATIENT
  Age: 33 Year
  Sex: Female
  Weight: 55 kg

DRUGS (3)
  1. METHOTREXATE SODIUM [Suspect]
     Active Substance: METHOTREXATE SODIUM
     Indication: Dermatitis atopic
     Route: 013
  2. CYCLOSPORINE [Concomitant]
     Active Substance: CYCLOSPORINE
  3. CYCLOSPORINE [Concomitant]
     Active Substance: CYCLOSPORINE

REACTIONS (4)
  - Appendicitis [Unknown]
  - Off label use [Unknown]
  - Post procedural infection [Unknown]
  - Drug ineffective for unapproved indication [Unknown]
